FAERS Safety Report 7302198-4 (Version None)
Quarter: 2011Q1

REPORT INFORMATION
  Report Type: 
  Country: None (occurrence: None)
  Receive Date: 20110218
  Receipt Date: 20110208
  Transmission Date: 20110831
  Serious: Yes (Other)
  Sender: FDA-Public Use
  Company Number: PHHY2010CA49337

PATIENT
  Sex: Female

DRUGS (1)
  1. SANDOSTATIN LAR [Suspect]
     Indication: CARCINOID TUMOUR
     Dosage: 30 MG, TIW
     Route: 030
     Dates: start: 20021020

REACTIONS (5)
  - DIARRHOEA [None]
  - BLOOD PRESSURE SYSTOLIC INCREASED [None]
  - CALCULUS URETERIC [None]
  - DYSURIA [None]
  - ABDOMINAL PAIN [None]
